FAERS Safety Report 5241030-X (Version None)
Quarter: 2007Q1

REPORT INFORMATION
  Report Type: 
  Country: None (occurrence: None)
  Receive Date: 20070220
  Receipt Date: 20070209
  Transmission Date: 20070707
  Serious: Yes (Death)
  Sender: FDA-Public Use
  Company Number: JP-MERCK-0702USA01845

PATIENT

DRUGS (2)
  1. COZAAR [Suspect]
     Route: 048
  2. ALDACTONE [Suspect]
     Route: 048

REACTIONS (1)
  - HYPERKALAEMIA [None]
